FAERS Safety Report 10184936 (Version 1)
Quarter: 2014Q2

REPORT INFORMATION
  Report Type: Spontaneous
  Country: US (occurrence: None)
  Receive Date: 20140520
  Receipt Date: 20140520
  Transmission Date: 20141212
  Serious: Yes (Hospitalization)
  Sender: FDA-Public Use
  Company Number: None

PATIENT
  Age: 88 Year
  Sex: Male

DRUGS (7)
  1. WARFARIN [Suspect]
     Indication: ATRIAL FIBRILLATION
     Route: 048
     Dates: end: 20120923
  2. ASCORBIC ACID [Concomitant]
  3. ATORVASTATIN [Concomitant]
  4. DONEPEZIL [Concomitant]
  5. ETHACRYNIC ACID [Concomitant]
  6. FERROUS SULFATE [Concomitant]
  7. METOPROLOL [Concomitant]

REACTIONS (4)
  - Subarachnoid haemorrhage [None]
  - Anticoagulation drug level below therapeutic [None]
  - Fall [None]
  - Dizziness [None]
